FAERS Safety Report 7957443-9 (Version None)
Quarter: 2011Q4

REPORT INFORMATION
  Report Type: 
  Country: None (occurrence: None)
  Receive Date: 20111205
  Receipt Date: 20111128
  Transmission Date: 20120403
  Serious: Yes (Other)
  Sender: FDA-Public Use
  Company Number: US-PFIZER INC-2007000878

PATIENT
  Sex: Female
  Weight: 63.492 kg

DRUGS (29)
  1. CHANTIX [Suspect]
     Indication: SMOKING CESSATION THERAPY
     Dosage: 0.5 MG, 1X/DAY
     Dates: start: 20061201, end: 20060101
  2. PAXIL [Concomitant]
     Indication: ANXIETY
     Dosage: 0.5 MG, DAILY
     Route: 048
  3. TIAZAC [Concomitant]
     Indication: CARDIAC DISORDER
     Dosage: 240 MG, UNK
  4. AMITRIPTYLINE [Concomitant]
     Indication: ANXIETY
  5. PAXIL [Concomitant]
     Indication: DEPRESSION
  6. ACETYLSALICYLIC ACID SRT [Concomitant]
     Dosage: 81 MG, UNK
  7. DIAZEPAM [Concomitant]
     Indication: DEPRESSION
  8. CHANTIX [Suspect]
     Dosage: 1 MG, HALF TABLET TWICE DAILY
     Dates: start: 20070101
  9. CHANTIX [Suspect]
     Dosage: 0.5 MG, DAILY
     Route: 048
     Dates: start: 20101108, end: 20100101
  10. PREMARIN [Concomitant]
     Dosage: 0.625 MG, UNK
  11. CHANTIX [Suspect]
     Dosage: UNK
     Dates: start: 20080224, end: 20080901
  12. CHANTIX [Suspect]
     Dosage: UNK, DAILY
     Route: 048
     Dates: start: 20111126
  13. LOPERAMIDE HCL [Concomitant]
     Dosage: UNK, AS NEEDED
  14. CHANTIX [Suspect]
     Dosage: 1 MG, UNK
  15. CHANTIX [Suspect]
     Dosage: UNK
     Dates: start: 20070101, end: 20070501
  16. NICODERM [Suspect]
     Dosage: UNK
  17. ZYRTEC [Concomitant]
     Indication: SINUS DISORDER
     Dosage: 10 MG, UNK
  18. DIAZEPAM [Concomitant]
     Indication: ANXIETY
  19. SPIRIVA [Concomitant]
     Dosage: UNK
  20. CHANTIX [Suspect]
     Dosage: 0.5 MG, UNK
     Dates: start: 20070101
  21. CHANTIX [Suspect]
     Dosage: 1 MG, 2X/DAY
     Dates: start: 20070101
  22. PHENERGAN [Concomitant]
     Dosage: 25 MG, UNK
  23. RHINOCORT [Concomitant]
     Dosage: UNK
  24. CHANTIX [Suspect]
     Dosage: 1 MG, 2X/DAY
     Dates: start: 20071208
  25. CHANTIX [Suspect]
     Dosage: UNK
     Dates: end: 20090201
  26. DIAZEPAM [Concomitant]
     Indication: SLEEP DISORDER
     Dosage: 2 TABLETS OF 2MG DAILY
     Route: 048
  27. AMITRIPTYLINE [Concomitant]
     Indication: DEPRESSION
     Dosage: 2 TABLETS, UNK
     Route: 048
  28. AMITRIPTYLINE [Concomitant]
     Indication: NEUROPATHY PERIPHERAL
  29. MECLIZINE [Concomitant]
     Indication: DIZZINESS
     Dosage: 2.5 MG, 2X/DAY

REACTIONS (14)
  - POLYURIA [None]
  - NERVOUSNESS [None]
  - LIP AND/OR ORAL CAVITY CANCER [None]
  - CHRONIC OBSTRUCTIVE PULMONARY DISEASE [None]
  - HEPATIC PAIN [None]
  - WEIGHT INCREASED [None]
  - BALANCE DISORDER [None]
  - EAR INJURY [None]
  - AGGRESSION [None]
  - RENAL PAIN [None]
  - FALL [None]
  - HEARING IMPAIRED [None]
  - TONGUE CYST [None]
  - HEART RATE ABNORMAL [None]
